FAERS Safety Report 15058829 (Version 1)
Quarter: 2018Q2

REPORT INFORMATION
  Report Type: Spontaneous
  Country: PH (occurrence: PH)
  Receive Date: 20180625
  Receipt Date: 20180625
  Transmission Date: 20180711
  Serious: Yes (Death, Hospitalization, Other)
  Sender: FDA-Public Use
  Company Number: PH-B.I. PHARMACEUTICALS,INC./RIDGEFIELD-2018-BI-031906

PATIENT
  Sex: Female

DRUGS (5)
  1. JARDIANCE [Suspect]
     Active Substance: EMPAGLIFLOZIN
     Indication: BLOOD GLUCOSE ABNORMAL
     Route: 065
  2. AMINOLEBAN [Concomitant]
     Active Substance: AMINO ACIDS
     Indication: PRODUCT USED FOR UNKNOWN INDICATION
     Dosage: FORMULATION: ORAL POWDER
     Route: 065
     Dates: start: 201706, end: 20180422
  3. METOPROLOL. [Concomitant]
     Active Substance: METOPROLOL
     Indication: BLOOD PRESSURE ABNORMAL
     Route: 065
  4. MYRA E [Concomitant]
     Indication: VITAMIN SUPPLEMENTATION
     Route: 065
  5. ROSUVASTATIN. [Concomitant]
     Active Substance: ROSUVASTATIN
     Indication: BLOOD CHOLESTEROL ABNORMAL
     Route: 065

REACTIONS (1)
  - Hepatic cirrhosis [Fatal]
